FAERS Safety Report 21976411 (Version 10)
Quarter: 2023Q4

REPORT INFORMATION
  Report Type: Spontaneous
  Country: US (occurrence: US)
  Receive Date: 20230210
  Receipt Date: 20231020
  Transmission Date: 20240110
  Serious: Yes (Hospitalization, Other)
  Sender: FDA-Public Use
  Company Number: US-SA-SAC20230207001236

PATIENT
  Age: 72 Year
  Sex: Male

DRUGS (2)
  1. ELOCTATE [Suspect]
     Active Substance: EFMOROCTOCOG ALFA
     Dosage: 4000 U (+/-10%), BIW
     Route: 042
  2. ELOCTATE [Suspect]
     Active Substance: EFMOROCTOCOG ALFA
     Dosage: 4000 U (+/-10%), BIW
     Route: 042

REACTIONS (16)
  - Cellulitis [Unknown]
  - Pain in extremity [Unknown]
  - Oedema peripheral [Unknown]
  - Haemorrhage [Unknown]
  - Haemorrhage [Unknown]
  - Weight increased [Unknown]
  - Contusion [Unknown]
  - Skin ulcer [Unknown]
  - Pain in extremity [Unknown]
  - Eye pain [Unknown]
  - Procedural pain [Unknown]
  - Condition aggravated [Unknown]
  - Contusion [Recovered/Resolved]
  - Skin abrasion [Unknown]
  - Joint swelling [Unknown]
  - Eye operation [Unknown]

NARRATIVE: CASE EVENT DATE: 20230101
